FAERS Safety Report 7734889-5 (Version None)
Quarter: 2011Q3

REPORT INFORMATION
  Report Type: 
  Country: None (occurrence: None)
  Receive Date: 20110907
  Receipt Date: 20110829
  Transmission Date: 20111222
  Serious: Yes (Hospitalization, Other)
  Sender: FDA-Public Use
  Company Number: PHHY2010FR38350

PATIENT
  Sex: Female

DRUGS (1)
  1. IMATINIB MESYLATE [Suspect]
     Indication: CHRONIC MYELOID LEUKAEMIA
     Dosage: 400 MG, DAILY
     Dates: start: 20040311

REACTIONS (6)
  - BILIARY DILATATION [None]
  - DIARRHOEA [None]
  - DEHYDRATION [None]
  - GASTROINTESTINAL DISORDER [None]
  - ABDOMINAL DISTENSION [None]
  - FOREIGN BODY [None]
